FAERS Safety Report 4563702-2 (Version None)
Quarter: 2005Q1

REPORT INFORMATION
  Report Type: 
  Country: None (occurrence: None)
  Receive Date: 20050125
  Receipt Date: 20050112
  Transmission Date: 20050727
  Serious: Yes (Other)
  Sender: FDA-Public Use
  Company Number: 2005012498

PATIENT
  Age: 45 Year
  Sex: Male

DRUGS (3)
  1. VIBRAMYCIN [Suspect]
     Indication: ILL-DEFINED DISORDER
     Dosage: ORAL
     Route: 048
     Dates: start: 20041101, end: 20050107
  2. BETAMETHASONE [Suspect]
     Indication: ILL-DEFINED DISORDER
     Dosage: ORAL
     Route: 048
     Dates: start: 20041101, end: 20050107
  3. BRON (CAFFEINE, CHLORPHENAMINE MALEATE, DIHYDROCODEINE PHOSPHATE, METH [Concomitant]

REACTIONS (7)
  - AMMONIA INCREASED [None]
  - DEPRESSED LEVEL OF CONSCIOUSNESS [None]
  - GAMMA-GLUTAMYLTRANSFERASE INCREASED [None]
  - HALITOSIS [None]
  - HEPATIC ENCEPHALOPATHY [None]
  - LIVER DISORDER [None]
  - NASOPHARYNGITIS [None]
